FAERS Safety Report 6098133-X (Version None)
Quarter: 2009Q1

REPORT INFORMATION
  Report Type: 
  Country: None (occurrence: None)
  Receive Date: 20090227
  Receipt Date: 20090223
  Transmission Date: 20090719
  Serious: No
  Sender: FDA-Public Use
  Company Number: US-B.I. PHARMACEUTICALS,INC./RIDGEFIELD-2009-BP-02245BP

PATIENT
  Sex: Male

DRUGS (2)
  1. ZANTAC 150 [Suspect]
     Indication: DYSPEPSIA
     Dosage: 300MG
     Route: 048
     Dates: start: 20090206, end: 20090220
  2. PROSCAR [Concomitant]
     Indication: ALOPECIA
     Dates: start: 19980101

REACTIONS (3)
  - BLOOD GLUCOSE DECREASED [None]
  - DIZZINESS [None]
  - PAIN [None]
